FAERS Safety Report 6359401-7 (Version None)
Quarter: 2009Q3

REPORT INFORMATION
  Report Type: 
  Country: None (occurrence: None)
  Receive Date: 20090917
  Receipt Date: 20090908
  Transmission Date: 20100115
  Serious: Yes (Other)
  Sender: FDA-Public Use
  Company Number: ES-AMGEN-QUU362659

PATIENT
  Sex: Female
  Weight: 61 kg

DRUGS (11)
  1. NEULASTA [Suspect]
     Indication: CHEMOTHERAPY
     Route: 042
     Dates: start: 20090801, end: 20090801
  2. DEXAMETHASONE [Concomitant]
  3. OMEPRAZOLE [Concomitant]
  4. AMIODARONE HCL [Concomitant]
  5. PRAVASTATIN [Concomitant]
  6. BENADON [Concomitant]
  7. LEDERFOLIN [Concomitant]
  8. MOTILIUM [Concomitant]
  9. ACETAMINOPHEN [Concomitant]
  10. RENAGEL [Concomitant]
  11. ALPRAZOLAM [Concomitant]

REACTIONS (3)
  - DRUG ADMINISTRATION ERROR [None]
  - HYPOTENSION [None]
  - NAUSEA [None]
